FAERS Safety Report 7483710-1 (Version None)
Quarter: 2011Q2

REPORT INFORMATION
  Report Type: 
  Country: None (occurrence: None)
  Receive Date: 20110517
  Receipt Date: 20110505
  Transmission Date: 20111010
  Serious: Yes (Other)
  Sender: FDA-Public Use
  Company Number: PHHY2011FR39300

PATIENT
  Sex: Female

DRUGS (12)
  1. ESOMEPRAZOLE MAGNESIUM [Suspect]
     Indication: PROPHYLAXIS AGAINST GASTROINTESTINAL ULCER
     Dosage: UNK
     Dates: start: 20110110, end: 20110115
  2. BISOPROLOL FUMARATE [Concomitant]
     Dosage: 1.25 MG, BID
  3. IMOVANE [Concomitant]
     Dosage: 3.75 MG, QD
  4. FORLAX [Concomitant]
     Dosage: UNK
  5. DISCOTRINE [Concomitant]
     Dosage: 10 MG, PER 24 HRS
  6. FOSINOPRIL SODIUM [Suspect]
     Indication: CARDIAC FAILURE
     Dosage: 10 MG, BID
     Dates: start: 20101018
  7. HEMIGOXINE [Concomitant]
     Dosage: 1 DF, QW3
  8. LASIX [Suspect]
     Indication: CARDIAC FAILURE
     Dosage: 40 MG, QD
  9. SPASFON-LYOC [Concomitant]
     Dosage: UNK, PRN
  10. DICLOFENAC SODIUM [Suspect]
     Indication: TENDONITIS
     Dosage: UNK
     Route: 048
     Dates: start: 20110110, end: 20110115
  11. LASILIX RETARD [Suspect]
     Indication: CARDIAC FAILURE
     Dosage: 60 MG, QD
  12. ACETAMINOPHEN [Concomitant]
     Dosage: 1 G, TID

REACTIONS (1)
  - HYPONATRAEMIA [None]
